FAERS Safety Report 23974685 (Version 1)
Quarter: 2024Q2

REPORT INFORMATION
  Report Type: Spontaneous
  Country: US (occurrence: None)
  Receive Date: 20240614
  Receipt Date: 20240614
  Transmission Date: 20240716
  Serious: Yes (Other)
  Sender: FDA-Public Use
  Company Number: US-INFO-20240102

PATIENT
  Age: 68 Year
  Sex: Female

DRUGS (4)
  1. NOREPINEPHRINE [Suspect]
     Active Substance: NOREPINEPHRINE\NOREPINEPHRINE BITARTRATE
     Dosage: ()
     Route: 040
  2. MILRINONE [Concomitant]
     Active Substance: MILRINONE
  3. EPINEPHRINE [Concomitant]
     Active Substance: EPINEPHRINE
  4. VASOPRESSIN [Concomitant]
     Active Substance: VASOPRESSIN

REACTIONS (3)
  - Product packaging issue [Recovered/Resolved]
  - Hypotension [Recovered/Resolved]
  - Incorrect dose administered [Recovered/Resolved]

NARRATIVE: CASE EVENT DATE: 20240417
